FAERS Safety Report 7015159-X (Version None)
Quarter: 2010Q3

REPORT INFORMATION
  Report Type: 
  Country: None (occurrence: None)
  Receive Date: 20100927
  Receipt Date: 20091229
  Transmission Date: 20110219
  Serious: No
  Sender: FDA-Public Use
  Company Number: US-ASTRAZENECA-2009SE33913

PATIENT
  Age: 58 Year
  Sex: Female

DRUGS (4)
  1. ARIMIDEX [Suspect]
     Indication: BREAST CANCER
     Route: 048
     Dates: start: 20090201
  2. ZOLOFT [Concomitant]
  3. GENERIC MAXIDE [Concomitant]
  4. SYNTHROID [Concomitant]

REACTIONS (1)
  - HAEMORRHAGIC DIATHESIS [None]
